FAERS Safety Report 4338331-6 (Version None)
Quarter: 2004Q2

REPORT INFORMATION
  Report Type: 
  Country: None (occurrence: None)
  Receive Date: 20040409
  Receipt Date: 20040330
  Transmission Date: 20050107
  Serious: Yes (Hospitalization)
  Sender: FDA-Public Use
  Company Number: DE-JNJFOC-20040304759

PATIENT
  Age: 65 Year
  Sex: Female
  Weight: 68 kg

DRUGS (5)
  1. REMICADE [Suspect]
     Indication: CHONDRITIS
     Dosage: SEE IMAGE
     Route: 042
     Dates: start: 20030506
  2. REMICADE [Suspect]
     Indication: CHONDRITIS
     Dosage: SEE IMAGE
     Route: 042
     Dates: start: 20030603
  3. REMICADE [Suspect]
     Indication: CHONDRITIS
     Dosage: SEE IMAGE
     Route: 042
     Dates: start: 20030707
  4. REMICADE [Suspect]
     Indication: CHONDRITIS
     Dosage: SEE IMAGE
     Route: 042
     Dates: start: 20030819
  5. PREDNISOLONE [Concomitant]

REACTIONS (4)
  - ANXIETY [None]
  - DEMYELINATION [None]
  - DIZZINESS [None]
  - DYSPNOEA [None]
